FAERS Safety Report 10947994 (Version 1)
Quarter: 2015Q1

REPORT INFORMATION
  Report Type: Spontaneous
  Country: IN (occurrence: IN)
  Receive Date: 20150324
  Receipt Date: 20150324
  Transmission Date: 20150721
  Serious: Yes (Hospitalization)
  Sender: FDA-Public Use
  Company Number: IN-ALKEM-000919

PATIENT
  Age: 46 Year
  Sex: Female
  Weight: 70 kg

DRUGS (12)
  1. CEFUROXIME. [Suspect]
     Active Substance: CEFUROXIME
     Indication: PRODUCT USED FOR UNKNOWN INDICATION
     Dosage: 1.5 G DILUTED IN 20 ML STERILE WATER
     Route: 042
  2. PROPOFOL. [Concomitant]
     Active Substance: PROPOFOL
     Indication: ANAESTHESIA
  3. FENTANYL. [Concomitant]
     Active Substance: FENTANYL
     Indication: ANAESTHESIA
  4. ATENOLOL/ATENOLOL HYDROCHLORIDE [Concomitant]
     Dosage: IN MORNING
  5. LEVOTHYROXINE [Concomitant]
     Active Substance: LEVOTHYROXINE
     Dosage: THYROXIN SODIUM?IN MORNING
  6. VECURONIUM [Concomitant]
     Active Substance: VECURONIUM BROMIDE
     Indication: ANAESTHESIA
     Route: 042
  7. NICARDIPINE [Concomitant]
     Active Substance: NICARDIPINE
     Dosage: IN MORNING
  8. NITROUS OXIDE. [Concomitant]
     Active Substance: NITROUS OXIDE
  9. ISOFLURANE. [Concomitant]
     Active Substance: ISOFLURANE
  10. PRAZOSIN [Concomitant]
     Active Substance: PRAZOSIN
     Dosage: IN MORNING
  11. MIDAZOLAM [Concomitant]
     Active Substance: MIDAZOLAM\MIDAZOLAM HYDROCHLORIDE
     Indication: ANAESTHESIA
  12. LOSARTAN [Concomitant]
     Active Substance: LOSARTAN

REACTIONS (4)
  - Metabolic acidosis [None]
  - Respiratory acidosis [None]
  - Anaphylactic shock [Recovered/Resolved]
  - No therapeutic response [None]
